FAERS Safety Report 25735796 (Version 1)
Quarter: 2025Q3

REPORT INFORMATION
  Report Type: Spontaneous
  Country: US (occurrence: US)
  Receive Date: 20250828
  Receipt Date: 20250828
  Transmission Date: 20251021
  Serious: No
  Sender: PFIZER
  Company Number: US-PFIZER INC-202500170734

PATIENT
  Age: 40 Year
  Sex: Female

DRUGS (3)
  1. XELJANZ [Suspect]
     Active Substance: TOFACITINIB CITRATE
     Indication: Rheumatoid arthritis
     Dosage: 5 MG, 2X/DAY
     Route: 048
     Dates: start: 202507
  2. HYDROXYCHLOROQUINE SULFATE [Concomitant]
     Active Substance: HYDROXYCHLOROQUINE SULFATE
  3. LEFLUNOMIDE [Concomitant]
     Active Substance: LEFLUNOMIDE

REACTIONS (2)
  - Fatigue [Unknown]
  - Pyrexia [Unknown]

NARRATIVE: CASE EVENT DATE: 20250101
